FAERS Safety Report 9563111 (Version 2)
Quarter: 2013Q3

REPORT INFORMATION
  Report Type: Spontaneous
  Country: US (occurrence: US)
  Receive Date: 20130927
  Receipt Date: 20130927
  Transmission Date: 20140515
  Serious: No
  Sender: FDA-Public Use
  Company Number: US-BRISTOL-MYERS SQUIBB COMPANY-17170234

PATIENT
  Age: 65 Year
  Sex: Female
  Weight: 64.4 kg

DRUGS (4)
  1. ONGLYZA TABS [Suspect]
     Indication: TYPE 2 DIABETES MELLITUS
     Dates: start: 20121009
  2. METFORMIN [Concomitant]
  3. LISINOPRIL [Concomitant]
  4. ARMOUR THYROID [Concomitant]
     Dosage: DOSE DECREASED TO 90MG DAILY ON 8OCT2012
     Dates: start: 20120927

REACTIONS (1)
  - Fatigue [Unknown]
